FAERS Safety Report 7304232-4 (Version None)
Quarter: 2011Q1

REPORT INFORMATION
  Report Type: 
  Country: None (occurrence: None)
  Receive Date: 20110221
  Receipt Date: 20110207
  Transmission Date: 20110831
  Serious: Yes (Hospitalization)
  Sender: FDA-Public Use
  Company Number: US-BAYER-201037388NA

PATIENT
  Sex: Female
  Weight: 94 kg

DRUGS (5)
  1. OCELLA [Suspect]
     Indication: PRODUCT USED FOR UNKNOWN INDICATION
     Dates: start: 20050602, end: 20071015
  2. VICODIN ES [Concomitant]
     Indication: PAIN
     Dosage: UNK UNK, Q4HR
     Route: 048
     Dates: start: 20071004
  3. YAZ [Suspect]
     Indication: PRODUCT USED FOR UNKNOWN INDICATION
     Route: 048
     Dates: start: 20050602, end: 20071015
  4. SKELAXIN [Concomitant]
     Dosage: 800 MG, UNK
     Dates: start: 20071004
  5. YASMIN [Suspect]
     Indication: PRODUCT USED FOR UNKNOWN INDICATION
     Route: 048
     Dates: start: 20050602, end: 20071015

REACTIONS (5)
  - WEIGHT INCREASED [None]
  - URINARY TRACT INFECTION [None]
  - BACK PAIN [None]
  - PULMONARY EMBOLISM [None]
  - DYSPNOEA [None]
